FAERS Safety Report 5187365-0 (Version None)
Quarter: 2006Q4

REPORT INFORMATION
  Report Type: 
  Country: None (occurrence: None)
  Receive Date: 20061220
  Receipt Date: 20060614
  Transmission Date: 20070319
  Serious: No
  Sender: FDA-Public Use
  Company Number: US-AMGEN-US182983

PATIENT
  Sex: Female

DRUGS (2)
  1. ENBREL [Suspect]
     Indication: ANKYLOSING SPONDYLITIS
     Route: 058
     Dates: start: 20060509
  2. AZULFIDINE [Concomitant]
     Route: 065

REACTIONS (4)
  - FATIGUE [None]
  - HEADACHE [None]
  - SINUS OPERATION [None]
  - SINUSITIS [None]
